FAERS Safety Report 7943235-3 (Version None)
Quarter: 2011Q4

REPORT INFORMATION
  Report Type: 
  Country: None (occurrence: None)
  Receive Date: 20111128
  Receipt Date: 20111122
  Transmission Date: 20120403
  Serious: Yes (Disabling, Other)
  Sender: FDA-Public Use
  Company Number: PHHY2011IT102949

PATIENT
  Sex: Female

DRUGS (4)
  1. VALSARTAN [Concomitant]
     Dosage: 40 MG, UNK
     Route: 048
     Dates: start: 20110101
  2. LOPRESSOR [Suspect]
     Indication: ATRIAL FIBRILLATION
     Dosage: 100 MG, DAILY
     Route: 048
     Dates: start: 20110101
  3. SINTROM [Suspect]
     Indication: ATRIAL FIBRILLATION
     Dosage: 2 MG, DAILY
     Route: 048
     Dates: start: 20110101, end: 20111022
  4. FLECAINIDE ACETATE [Suspect]
     Indication: ATRIAL FIBRILLATION
     Dosage: 200 MG, DAILY
     Route: 048
     Dates: start: 20110101

REACTIONS (4)
  - SPINAL HAEMATOMA [None]
  - PARAPLEGIA [None]
  - URINARY INCONTINENCE [None]
  - SUBDURAL HAEMATOMA [None]
